FAERS Safety Report 9409748 (Version 1)
Quarter: 2013Q2

REPORT INFORMATION
  Report Type: Spontaneous
  Country: BE (occurrence: None)
  Receive Date: 20130610
  Receipt Date: 20130610
  Transmission Date: 20140414
  Serious: Yes (Other)
  Sender: FDA-Public Use
  Company Number: 2013P1006723

PATIENT
  Sex: 0

DRUGS (2)
  1. PROPANOLOL [Suspect]
  2. UNSPECIFIED PSYCHOACTIVE DRUGS [Suspect]

REACTIONS (3)
  - Toxicity to various agents [None]
  - Circulatory collapse [None]
  - Coma [None]
